FAERS Safety Report 18187286 (Version 1)
Quarter: 2020Q3

REPORT INFORMATION
  Report Type: Spontaneous
  Country: FR (occurrence: FR)
  Receive Date: 20200824
  Receipt Date: 20200824
  Transmission Date: 20201103
  Serious: Yes (Hospitalization)
  Sender: FDA-Public Use
  Company Number: FR-ACCORD-196751

PATIENT
  Age: 65 Year
  Sex: Male

DRUGS (1)
  1. FLUOROURACIL. [Suspect]
     Active Substance: FLUOROURACIL
     Indication: OESOPHAGEAL CARCINOMA
     Dosage: IN 46 MINUTES + 800 MG AS A BOLUS IN THE MORNING
     Route: 042
     Dates: start: 20200723

REACTIONS (2)
  - Product administration error [Unknown]
  - Overdose [Unknown]

NARRATIVE: CASE EVENT DATE: 20200723
